FAERS Safety Report 21805452 (Version 3)
Quarter: 2023Q1

REPORT INFORMATION
  Report Type: Report from Study
  Country: IT (occurrence: IT)
  Receive Date: 20230102
  Receipt Date: 20230228
  Transmission Date: 20230418
  Serious: Yes (Other)
  Sender: FDA-Public Use
  Company Number: IT-JNJFOC-20221256002

PATIENT

DRUGS (14)
  1. SIMPONI [Suspect]
     Active Substance: GOLIMUMAB
     Indication: Crohn^s disease
     Route: 058
  2. REMICADE [Suspect]
     Active Substance: INFLIXIMAB
     Indication: Crohn^s disease
     Route: 041
  3. REMICADE [Suspect]
     Active Substance: INFLIXIMAB
     Indication: Colitis ulcerative
  4. STELARA [Suspect]
     Active Substance: USTEKINUMAB
     Indication: Crohn^s disease
     Route: 058
  5. STELARA [Suspect]
     Active Substance: USTEKINUMAB
     Indication: Colitis ulcerative
  6. VEDOLIZUMAB [Suspect]
     Active Substance: VEDOLIZUMAB
     Indication: Crohn^s disease
     Route: 065
  7. VEDOLIZUMAB [Suspect]
     Active Substance: VEDOLIZUMAB
     Indication: Colitis ulcerative
  8. ADALIMUMAB [Suspect]
     Active Substance: ADALIMUMAB
     Indication: Crohn^s disease
     Route: 065
  9. ADALIMUMAB [Suspect]
     Active Substance: ADALIMUMAB
     Indication: Colitis ulcerative
  10. MESALAMINE [Concomitant]
     Active Substance: MESALAMINE
  11. AZATHIOPRINE [Concomitant]
     Active Substance: AZATHIOPRINE
  12. MERCAPTOPURINE [Concomitant]
     Active Substance: MERCAPTOPURINE
  13. SULFASALAZINE [Concomitant]
     Active Substance: SULFASALAZINE
  14. METHOTREXATE [Concomitant]
     Active Substance: METHOTREXATE

REACTIONS (17)
  - Colorectal cancer [Unknown]
  - Skin cancer [Unknown]
  - Hepatic cancer [Unknown]
  - Neoplasm malignant [Unknown]
  - Pneumonia [Unknown]
  - Herpes zoster [Unknown]
  - COVID-19 [Unknown]
  - Tooth abscess [Unknown]
  - Arthropathy [Unknown]
  - Blood disorder [Unknown]
  - Anorectal disorder [Unknown]
  - Erythema [Unknown]
  - Pruritus [Unknown]
  - Psoriasis [Unknown]
  - Infusion related reaction [Unknown]
  - Injection related reaction [Unknown]
  - Treatment failure [Unknown]
